FAERS Safety Report 6583776-7 (Version None)
Quarter: 2010Q1

REPORT INFORMATION
  Report Type: 
  Country: None (occurrence: None)
  Receive Date: 20100213
  Receipt Date: 20100213
  Transmission Date: 20100710
  Serious: Yes (Life-Threatening)
  Sender: FDA-Public Use
  Company Number: None

PATIENT
  Sex: Male
  Weight: 68.0396 kg

DRUGS (1)
  1. PROVENTIL GENTLEHALER [Suspect]
     Indication: ASTHMA
     Dosage: AS NEEDED, INHAL
     Route: 055

REACTIONS (3)
  - ASTHMA [None]
  - DRUG INEFFECTIVE [None]
  - PRODUCT QUALITY ISSUE [None]
